FAERS Safety Report 5820376-8 (Version None)
Quarter: 2008Q3

REPORT INFORMATION
  Report Type: 
  Country: None (occurrence: None)
  Receive Date: 20080724
  Receipt Date: 20070619
  Transmission Date: 20090109
  Serious: No
  Sender: FDA-Public Use
  Company Number: A0658269A

PATIENT
  Age: 66 Year
  Sex: Male
  Weight: 181.8 kg

DRUGS (5)
  1. AVANDIA [Suspect]
     Dosage: 8MG PER DAY
     Route: 048
     Dates: start: 19990101
  2. INSULIN [Concomitant]
  3. LASIX [Concomitant]
  4. DIOVAN [Concomitant]
  5. METOLAZONE [Concomitant]

REACTIONS (3)
  - MOBILITY DECREASED [None]
  - OEDEMA PERIPHERAL [None]
  - WEIGHT INCREASED [None]
